FAERS Safety Report 7950708-6 (Version None)
Quarter: 2011Q4

REPORT INFORMATION
  Report Type: 
  Country: None (occurrence: None)
  Receive Date: 20111201
  Receipt Date: 20111128
  Transmission Date: 20120403
  Serious: Yes (Hospitalization)
  Sender: FDA-Public Use
  Company Number: TH-BRISTOL-MYERS SQUIBB COMPANY-15811771

PATIENT
  Age: 50 Year
  Sex: Male

DRUGS (4)
  1. BLINDED: PLACEBO [Suspect]
     Indication: TYPE 2 DIABETES MELLITUS
     Dates: start: 20110519, end: 20110605
  2. PIOGLITAZONE HCL [Suspect]
     Indication: DIABETES MELLITUS
  3. METFORMIN HCL [Suspect]
     Indication: DIABETES MELLITUS
  4. BLINDED: SAXAGLIPTIN [Suspect]
     Indication: TYPE 2 DIABETES MELLITUS
     Dates: start: 20110519, end: 20110605

REACTIONS (3)
  - ASPARTATE AMINOTRANSFERASE INCREASED [None]
  - PANCREATITIS ACUTE [None]
  - ALANINE AMINOTRANSFERASE INCREASED [None]
